FAERS Safety Report 10372324 (Version 1)
Quarter: 2014Q3

REPORT INFORMATION
  Report Type: Spontaneous
  Country: NL (occurrence: NL)
  Receive Date: 20140808
  Receipt Date: 20140808
  Transmission Date: 20150326
  Serious: Yes (Life-Threatening)
  Sender: FDA-Public Use
  Company Number: NL-PERRIGO-14NL007577

PATIENT

DRUGS (2)
  1. ACETAMINOPHEN 650MG ER 544 [Suspect]
     Active Substance: ACETAMINOPHEN
     Indication: PRODUCT USED FOR UNKNOWN INDICATION
     Dosage: UNK, UNK
     Route: 048
  2. N-ACETYLCYSTEINE [Suspect]
     Active Substance: ACETYLCYSTEINE
     Indication: OVERDOSE
     Dosage: UNK, UNK
     Route: 042

REACTIONS (2)
  - Respiratory arrest [Recovered/Resolved]
  - Overdose [Recovered/Resolved]
